FAERS Safety Report 13633954 (Version 1)
Quarter: 2017Q2

REPORT INFORMATION
  Report Type: Spontaneous
  Country: US (occurrence: US)
  Receive Date: 20170531
  Receipt Date: 20170531
  Transmission Date: 20170830
  Serious: No
  Sender: FDA-Public Use
  Company Number: US-ASTELLAS-1592356

PATIENT
  Sex: Female
  Weight: 63.56 kg

DRUGS (13)
  1. XARELTO [Concomitant]
     Active Substance: RIVAROXABAN
     Route: 048
  2. FUROSEMIDE. [Concomitant]
     Active Substance: FUROSEMIDE
  3. OXYCODONE HYDROCHLORIDE. [Concomitant]
     Active Substance: OXYCODONE HYDROCHLORIDE
     Dosage: AS NEEDED, EXTENDED RELEASE
     Route: 048
  4. LOTRISONE [Concomitant]
     Active Substance: BETAMETHASONE DIPROPIONATE\CLOTRIMAZOLE
     Dosage: APPLY 1 APPLICATION TO AFFECTED AREA, TWICE DAILY
     Route: 065
  5. ECOTRIN [Concomitant]
     Active Substance: ASPIRIN
  6. OXYCODONE HYDROCHLORIDE. [Concomitant]
     Active Substance: OXYCODONE HYDROCHLORIDE
     Indication: PAIN
     Dosage: AS NEEDED, IMMIDIATE RELEASE
     Route: 048
  7. PRILOSEC [Concomitant]
     Active Substance: OMEPRAZOLE MAGNESIUM
     Route: 048
  8. HYDRODIURIL [Concomitant]
     Active Substance: HYDROCHLOROTHIAZIDE
     Route: 048
  9. TARCEVA [Suspect]
     Active Substance: ERLOTINIB HYDROCHLORIDE
     Indication: LUNG NEOPLASM MALIGNANT
     Route: 048
     Dates: start: 20140624, end: 20150427
  10. SPECTAZOLE [Concomitant]
     Active Substance: ECONAZOLE NITRATE
     Dosage: APPLY TO BREAST DAILY
     Route: 065
  11. CLINDAGEL [Concomitant]
     Active Substance: CLINDAMYCIN PHOSPHATE
     Dosage: APPLY 1 APPLICATION TO AFFECTED AREA, TWICE DAILY
     Route: 065
  12. DEBROX [Concomitant]
     Active Substance: CARBAMIDE PEROXIDE
     Dosage: OTIC SOLUTION, 5 DROPS REPEAT EVERY 1-2 HRS IF NEEDED
     Route: 065
  13. NEURONTIN [Concomitant]
     Active Substance: GABAPENTIN
     Route: 048

REACTIONS (5)
  - Rash [Recovering/Resolving]
  - Ocular hyperaemia [Unknown]
  - Arthralgia [Unknown]
  - Alopecia [Unknown]
  - Eye pruritus [Unknown]
